FAERS Safety Report 5959377-8 (Version None)
Quarter: 2008Q4

REPORT INFORMATION
  Report Type: 
  Country: None (occurrence: None)
  Receive Date: 20081119
  Receipt Date: 20081119
  Transmission Date: 20090506
  Serious: No
  Sender: FDA-Public Use
  Company Number: None

PATIENT
  Age: 52 Year
  Sex: Male

DRUGS (10)
  1. GENTAMICIN [Suspect]
     Indication: ENDOCARDITIS
     Dosage: 90 MG IV Q 8H
     Dates: start: 20080509, end: 20080513
  2. BUPROPION HCL [Concomitant]
  3. NICOTINE [Concomitant]
  4. OXYCODONE HCL [Concomitant]
  5. DIAZEPAM [Concomitant]
  6. CYCLOBENZAPRINE HCL [Concomitant]
  7. SAQUINOVIR [Concomitant]
  8. RITONAVIR [Concomitant]
  9. LISINOPRIL [Concomitant]
  10. CETTRIAXIONE [Concomitant]

REACTIONS (1)
  - DEAFNESS [None]
